FAERS Safety Report 17435577 (Version 1)
Quarter: 2020Q1

REPORT INFORMATION
  Report Type: Report from Study
  Country: JP (occurrence: JP)
  Receive Date: 20200219
  Receipt Date: 20200219
  Transmission Date: 20200409
  Serious: Yes (Other)
  Sender: FDA-Public Use
  Company Number: NVSJ2020JP001695

PATIENT
  Age: 68 Year
  Sex: Male

DRUGS (7)
  1. REVOLADE TAB [Suspect]
     Active Substance: ELTROMBOPAG
     Indication: APLASTIC ANAEMIA
     Dosage: 25 MG, UNK
     Route: 048
     Dates: start: 20181010, end: 20190212
  2. REVOLADE TAB [Suspect]
     Active Substance: ELTROMBOPAG
     Dosage: 50 MG
     Route: 048
     Dates: start: 20190213, end: 20190312
  3. REVOLADE TAB [Suspect]
     Active Substance: ELTROMBOPAG
     Dosage: 75 MG
     Route: 048
     Dates: start: 20190214, end: 20190514
  4. REVOLADE TAB [Suspect]
     Active Substance: ELTROMBOPAG
     Dosage: 100 MG
     Route: 048
     Dates: start: 20190515, end: 20191110
  5. LORAZEPAM. [Concomitant]
     Active Substance: LORAZEPAM
     Indication: PANIC DISORDER
     Dosage: 0.25 MG, UNK
     Route: 048
     Dates: start: 20180319
  6. LIPITOR [Concomitant]
     Active Substance: ATORVASTATIN CALCIUM
     Indication: DYSLIPIDAEMIA
     Dosage: 5 MG, UNK
     Route: 048
     Dates: start: 20180319
  7. NEORAL [Concomitant]
     Active Substance: CYCLOSPORINE
     Indication: APLASTIC ANAEMIA
     Dosage: 240 MG, UNK
     Route: 048
     Dates: start: 20180319, end: 20191217

REACTIONS (3)
  - Aplastic anaemia [Not Recovered/Not Resolved]
  - Disease progression [Not Recovered/Not Resolved]
  - Haemorrhage [Unknown]

NARRATIVE: CASE EVENT DATE: 20190524
